FAERS Safety Report 24799914 (Version 3)
Quarter: 2025Q1

REPORT INFORMATION
  Report Type: Spontaneous
  Country: IN (occurrence: IN)
  Receive Date: 20250102
  Receipt Date: 20250318
  Transmission Date: 20250409
  Serious: Yes (Hospitalization)
  Sender: PFIZER
  Company Number: IN-PFIZER INC-PV202400023868

PATIENT
  Age: 74 Year
  Sex: Female

DRUGS (5)
  1. PALBOCICLIB [Suspect]
     Active Substance: PALBOCICLIB
     Indication: Breast cancer metastatic
     Route: 048
     Dates: end: 2024
  2. PALBOCICLIB [Suspect]
     Active Substance: PALBOCICLIB
     Dates: start: 20190308
  3. LETROZOLE [Concomitant]
     Active Substance: LETROZOLE
     Indication: Breast cancer metastatic
     Dosage: 2.5 MG, 1X/DAY (X1 MONTH)
     Route: 048
  4. CALCIUM CARBONATE\CHOLECALCIFEROL [Concomitant]
     Active Substance: CALCIUM CARBONATE\CHOLECALCIFEROL
  5. OSTEOFOS [Concomitant]
     Dosage: 70 MG, WEEKLY (EVERY SUNDAY; X1 MONTH)

REACTIONS (8)
  - Cardiomyopathy [Unknown]
  - Pain in extremity [Unknown]
  - Pallor [Unknown]
  - Lymphoedema [Unknown]
  - Rhinorrhoea [Unknown]
  - Blood glucose increased [Unknown]
  - Bone pain [Recovering/Resolving]
  - Swelling [Unknown]

NARRATIVE: CASE EVENT DATE: 20240213
